FAERS Safety Report 25146815 (Version 2)
Quarter: 2025Q2

REPORT INFORMATION
  Report Type: Spontaneous
  Country: GB (occurrence: GB)
  Receive Date: 20250401
  Receipt Date: 20250519
  Transmission Date: 20250716
  Serious: Yes (Hospitalization, Other)
  Sender: MYLAN
  Company Number: GB-MYLANLABS-2025M1026914

PATIENT
  Age: 46 Year
  Sex: Female

DRUGS (12)
  1. CLOZARIL [Suspect]
     Active Substance: CLOZAPINE
     Indication: Schizophrenia
     Dosage: 300 MILLIGRAM, QD
     Dates: start: 20100909
  2. CLOZARIL [Suspect]
     Active Substance: CLOZAPINE
     Dosage: 300 MILLIGRAM, QD
     Route: 048
     Dates: start: 20100909
  3. CLOZARIL [Suspect]
     Active Substance: CLOZAPINE
     Dosage: 300 MILLIGRAM, QD
     Route: 048
     Dates: start: 20100909
  4. CLOZARIL [Suspect]
     Active Substance: CLOZAPINE
     Dosage: 300 MILLIGRAM, QD
     Dates: start: 20100909
  5. CLOZARIL [Suspect]
     Active Substance: CLOZAPINE
     Dosage: UNK, BID (150MG MORNING AND 200MG NIGHT)
  6. CLOZARIL [Suspect]
     Active Substance: CLOZAPINE
     Dosage: UNK, BID (150MG MORNING AND 200MG NIGHT)
     Route: 048
  7. CLOZARIL [Suspect]
     Active Substance: CLOZAPINE
     Dosage: UNK, BID (150MG MORNING AND 200MG NIGHT)
  8. CLOZARIL [Suspect]
     Active Substance: CLOZAPINE
     Dosage: UNK, BID (150MG MORNING AND 200MG NIGHT)
     Route: 048
  9. CLOZARIL [Suspect]
     Active Substance: CLOZAPINE
     Dosage: UNK, BID (50MG MORNING AND 300MG NIGHT)
     Route: 048
     Dates: start: 202503, end: 20250307
  10. CLOZARIL [Suspect]
     Active Substance: CLOZAPINE
     Dosage: UNK, BID (50MG MORNING AND 300MG NIGHT)
     Route: 048
     Dates: start: 202503, end: 20250307
  11. CLOZARIL [Suspect]
     Active Substance: CLOZAPINE
     Dosage: UNK, BID (50MG MORNING AND 300MG NIGHT)
     Dates: start: 202503, end: 20250307
  12. CLOZARIL [Suspect]
     Active Substance: CLOZAPINE
     Dosage: UNK, BID (50MG MORNING AND 300MG NIGHT)
     Dates: start: 202503, end: 20250307

REACTIONS (2)
  - Mental impairment [Recovered/Resolved]
  - Treatment noncompliance [Recovered/Resolved]

NARRATIVE: CASE EVENT DATE: 20250307
